FAERS Safety Report 5163585-6 (Version None)
Quarter: 2006Q4

REPORT INFORMATION
  Report Type: 
  Country: None (occurrence: None)
  Receive Date: 20061128
  Receipt Date: 20061128
  Transmission Date: 20070319
  Serious: Yes (Other)
  Sender: FDA-Public Use
  Company Number: None

PATIENT
  Age: 61 Year
  Sex: Male
  Weight: 76 kg

DRUGS (6)
  1. FILGRASTIM [Suspect]
     Indication: LEUKOPENIA
     Dosage: 300MCG  DAILY  SC
     Route: 058
     Dates: start: 20060424, end: 20060427
  2. DAPTOMYCIN [Suspect]
     Indication: ABSCESS
     Dosage: 300MG  FREQ?   IV
     Route: 042
     Dates: start: 20060424, end: 20060427
  3. DAPTOMYCIN [Suspect]
     Indication: ARTHRITIS BACTERIAL
     Dosage: 300MG  FREQ?   IV
     Route: 042
     Dates: start: 20060424, end: 20060427
  4. ACYCLOVIR [Concomitant]
  5. GEMFIBROZIL [Concomitant]
  6. RANITIDINE [Concomitant]

REACTIONS (1)
  - RASH [None]
